FAERS Safety Report 11272708 (Version 2)
Quarter: 2015Q3

REPORT INFORMATION
  Report Type: Spontaneous
  Country: CA (occurrence: CA)
  Receive Date: 20150715
  Receipt Date: 20150819
  Transmission Date: 20151125
  Serious: Yes (Disabling)
  Sender: FDA-Public Use
  Company Number: PHHY2015CA083011

PATIENT

DRUGS (2)
  1. IMMUNOGLOBULIN ANTI HUMAN T-LYMPHOCYTE [Concomitant]
     Indication: PRODUCT USED FOR UNKNOWN INDICATION
     Route: 042
  2. GILENYA [Suspect]
     Active Substance: FINGOLIMOD HYDROCHLORIDE
     Indication: PRODUCT USED FOR UNKNOWN INDICATION
     Dosage: UNK
     Route: 048
     Dates: start: 20130926, end: 2015

REACTIONS (1)
  - Encephalitis autoimmune [Not Recovered/Not Resolved]
